FAERS Safety Report 5006565-3 (Version None)
Quarter: 2006Q2

REPORT INFORMATION
  Report Type: 
  Country: None (occurrence: None)
  Receive Date: 20060519
  Receipt Date: 20060515
  Transmission Date: 20061013
  Serious: Yes (Life-Threatening)
  Sender: FDA-Public Use
  Company Number: 2006SE02778

PATIENT
  Age: 57 Year
  Sex: Female

DRUGS (2)
  1. BLOPRESS TABLETS 8 [Suspect]
     Indication: HYPERTENSION
     Route: 048
  2. NORVASC [Concomitant]
     Route: 048

REACTIONS (3)
  - DYSPNOEA [None]
  - HEADACHE [None]
  - HYPOAESTHESIA [None]
